FAERS Safety Report 20365040 (Version 1)
Quarter: 2022Q1

REPORT INFORMATION
  Report Type: Spontaneous
  Country: SE (occurrence: SE)
  Receive Date: 20220122
  Receipt Date: 20220122
  Transmission Date: 20220423
  Serious: Yes (Other)
  Sender: FDA-Public Use
  Company Number: SE-JNJFOC-20220128383

PATIENT

DRUGS (1)
  1. IMBRUVICA [Suspect]
     Active Substance: IBRUTINIB
     Indication: Chronic lymphocytic leukaemia
     Route: 048

REACTIONS (6)
  - Aspergillus infection [Unknown]
  - Sepsis [Unknown]
  - Atrial fibrillation [Unknown]
  - Pneumonia [Unknown]
  - Respiratory tract infection [Unknown]
  - Influenza [Unknown]
